FAERS Safety Report 5054037-2 (Version None)
Quarter: 2006Q3

REPORT INFORMATION
  Report Type: 
  Country: None (occurrence: None)
  Receive Date: 20060713
  Receipt Date: 20060623
  Transmission Date: 20061208
  Serious: Yes (Congenital Anomaly)
  Sender: FDA-Public Use
  Company Number: 2006JP001744

PATIENT
  Age: 1 Day

DRUGS (6)
  1. PROTOPIC [Suspect]
     Dosage: TRANSPLACENTAL
     Route: 064
     Dates: end: 20060111
  2. ANTEBATE (BETAMETHASONE BUTYRATE PROPIONATE) OINTMENT [Concomitant]
  3. HIRUDOID (HEPARINOID) OINTMENT [Concomitant]
  4. ALESION (EPINASTINE HYDROCHLORIDE) [Concomitant]
  5. WHITE PETROLEUM (PETROLATUM) OINTMENT [Concomitant]
  6. HIRUDOID (HEPARINOID) LOTION [Concomitant]

REACTIONS (8)
  - ARRHYTHMIA NEONATAL [None]
  - CAESAREAN SECTION [None]
  - DRUG EXPOSURE BEFORE PREGNANCY [None]
  - DRUG EXPOSURE DURING PREGNANCY [None]
  - FOETAL GROWTH RETARDATION [None]
  - LIMB HYPOPLASIA CONGENITAL [None]
  - RADIOULNAR SYNOSTOSIS [None]
  - TALIPES [None]
